FAERS Safety Report 18923118 (Version 1)
Quarter: 2021Q1

REPORT INFORMATION
  Report Type: Other
  Country: US (occurrence: US)
  Receive Date: 20210222
  Receipt Date: 20210222
  Transmission Date: 20210420
  Serious: Yes (Other)
  Sender: FDA-Public Use
  Company Number: US-ROCHE-2737392

PATIENT
  Sex: Female
  Weight: 95.8 kg

DRUGS (1)
  1. OCREVUS [Suspect]
     Active Substance: OCRELIZUMAB
     Indication: RELAPSING MULTIPLE SCLEROSIS
     Dosage: (PRESCRIBED: INITIAL DOSE 300 MG IV ON WEEK 0 AND 2, THEN SUBSEQUENT DOSE 600 MG IV EVERY 6 MONTHS)
     Route: 042
     Dates: start: 20190719, end: 20200728

REACTIONS (1)
  - Bladder transitional cell carcinoma stage II [Not Recovered/Not Resolved]
